FAERS Safety Report 6309285-8 (Version None)
Quarter: 2009Q3

REPORT INFORMATION
  Report Type: 
  Country: None (occurrence: None)
  Receive Date: 20090814
  Receipt Date: 20090805
  Transmission Date: 20100115
  Serious: Yes (Hospitalization)
  Sender: FDA-Public Use
  Company Number: SE-JNJFOC-20090801681

PATIENT
  Age: 27 Year
  Sex: Male

DRUGS (4)
  1. REMICADE [Suspect]
     Route: 042
  2. REMICADE [Suspect]
     Indication: COLITIS ULCERATIVE
     Route: 042
  3. AZATHIOPRINE [Concomitant]
  4. PREDNISOLONE [Concomitant]

REACTIONS (6)
  - GAIT DISTURBANCE [None]
  - HIDRADENITIS [None]
  - PAIN [None]
  - PUSTULAR PSORIASIS [None]
  - RASH GENERALISED [None]
  - SWEAT GLAND DISORDER [None]
